FAERS Safety Report 8115565-6 (Version None)
Quarter: 2012Q1

REPORT INFORMATION
  Report Type: 
  Country: None (occurrence: None)
  Receive Date: 20120206
  Receipt Date: 20120126
  Transmission Date: 20120608
  Serious: Yes (Other)
  Sender: FDA-Public Use
  Company Number: CA-JNJFOC-20120200835

PATIENT
  Sex: Male
  Weight: 79 kg

DRUGS (4)
  1. ACETAMINOPHEN [Concomitant]
     Dosage: 3 NO. (P.R.N)
     Route: 065
  2. REMICADE [Suspect]
     Indication: CROHN'S DISEASE
     Route: 042
     Dates: start: 20091001
  3. MESALAMINE [Concomitant]
     Route: 065
  4. CELEBREX [Concomitant]
     Route: 065

REACTIONS (1)
  - ANIMAL BITE [None]
